FAERS Safety Report 11722817 (Version 2)
Quarter: 2015Q4

REPORT INFORMATION
  Report Type: Spontaneous
  Country: JP (occurrence: JP)
  Receive Date: 20151111
  Receipt Date: 20151204
  Transmission Date: 20160304
  Serious: Yes (Other)
  Sender: FDA-Public Use
  Company Number: JP-ASTELLAS-2015JP021669

PATIENT
  Age: 63 Year
  Sex: Female
  Weight: 48 kg

DRUGS (10)
  1. BETANIS [Concomitant]
     Active Substance: MIRABEGRON
     Indication: HYPERTONIC BLADDER
     Route: 048
     Dates: start: 20150811, end: 20150910
  2. PROCTOSEDYL [Concomitant]
     Active Substance: DIBUCAINE HYDROCHLORIDE\HYDROCORTISONE
     Indication: ANAL FISSURE
     Route: 054
     Dates: start: 20150811, end: 20150908
  3. FAROM [Concomitant]
     Active Substance: FAROPENEM SODIUM
     Indication: CYSTITIS
     Route: 048
     Dates: start: 20150804, end: 20150816
  4. BETANIS [Concomitant]
     Active Substance: MIRABEGRON
     Indication: THERAPEUTIC RESPONSE DECREASED
  5. AZUNOL                             /00620101/ [Concomitant]
     Indication: URETHRAL CARUNCLE
     Dosage: UNK UNK, 4 TIMES DAILY
     Route: 061
     Dates: start: 20150811, end: 20150908
  6. VESICARE [Suspect]
     Active Substance: SOLIFENACIN SUCCINATE
     Indication: HYPERTONIC BLADDER
     Route: 048
     Dates: start: 20150828, end: 20150910
  7. RIBAVARIN [Concomitant]
     Active Substance: RIBAVIRIN
     Indication: URETHRAL CARUNCLE
     Route: 048
     Dates: start: 20150804, end: 20150910
  8. ADONA                              /00056903/ [Concomitant]
     Active Substance: CARBAZOCHROME SODIUM SULFONATE
     Indication: URETHRAL CARUNCLE
     Route: 048
     Dates: start: 20150804, end: 20150828
  9. VESICARE [Suspect]
     Active Substance: SOLIFENACIN SUCCINATE
     Indication: THERAPEUTIC RESPONSE DECREASED
  10. MARZULENE ES                       /01184501/ [Concomitant]
     Indication: PROPHYLAXIS
     Route: 048
     Dates: start: 20150804, end: 20150910

REACTIONS (1)
  - Erythema multiforme [Recovering/Resolving]

NARRATIVE: CASE EVENT DATE: 201509
